FAERS Safety Report 5372819-4 (Version None)
Quarter: 2007Q2

REPORT INFORMATION
  Report Type: 
  Country: None (occurrence: None)
  Receive Date: 20070620
  Receipt Date: 20060717
  Transmission Date: 20071010
  Serious: Yes (Other)
  Sender: FDA-Public Use
  Company Number: 455945

PATIENT
  Sex: Male

DRUGS (1)
  1. INTERFERON ALFA (INTERFERON ALFA) [Suspect]
     Indication: HEPATITIS C
     Dosage: 6 MILLIONIU 3 PER 1 WEEK

REACTIONS (1)
  - NEUROPATHY PERIPHERAL [None]
